FAERS Safety Report 17173290 (Version 1)
Quarter: 2019Q4

REPORT INFORMATION
  Report Type: Spontaneous
  Country: US (occurrence: US)
  Receive Date: 20191219
  Receipt Date: 20191219
  Transmission Date: 20200122
  Serious: Yes (Other)
  Sender: FDA-Public Use
  Company Number: US-SUNOVION-2019SUN005448

PATIENT
  Sex: Female
  Weight: 129.25 kg

DRUGS (6)
  1. LAMICTAL [Concomitant]
     Active Substance: LAMOTRIGINE
     Indication: SEIZURE
     Dosage: 750 MG, QD/DIVIDED DOSE
  2. CARBAMAZEPINE. [Concomitant]
     Active Substance: CARBAMAZEPINE
     Indication: SEIZURE
     Dosage: UNK
  3. APTIOM [Suspect]
     Active Substance: ESLICARBAZEPINE ACETATE
     Indication: SEIZURE
     Dosage: 800 MG, QD
     Route: 048
  4. APTIOM [Suspect]
     Active Substance: ESLICARBAZEPINE ACETATE
     Indication: EPILEPSY
     Dosage: 400 MG
     Route: 048
     Dates: start: 20191110
  5. CLOBAZAM. [Concomitant]
     Active Substance: CLOBAZAM
     Dosage: 20 MG, BID
  6. PAROXETINE. [Concomitant]
     Active Substance: PAROXETINE
     Dosage: 60 MG, QD

REACTIONS (4)
  - Seizure [Not Recovered/Not Resolved]
  - Anxiety [Not Recovered/Not Resolved]
  - Temperature intolerance [Not Recovered/Not Resolved]
  - Postictal state [Not Recovered/Not Resolved]
